FAERS Safety Report 6234212-1 (Version None)
Quarter: 2009Q2

REPORT INFORMATION
  Report Type: 
  Country: None (occurrence: None)
  Receive Date: 20090618
  Receipt Date: 20090609
  Transmission Date: 20091009
  Serious: Yes (Hospitalization)
  Sender: FDA-Public Use
  Company Number: US-NOVOPROD-288161

PATIENT
  Age: 65 Year
  Sex: Female
  Weight: 74.376 kg

DRUGS (10)
  1. NOVOLOG [Suspect]
     Indication: INSULIN-REQUIRING TYPE 2 DIABETES MELLITUS
     Dosage: 3 IU, TID
     Route: 058
     Dates: start: 20090401, end: 20090607
  2. NOVOLOG [Suspect]
     Dosage: 12-18 IU, TID WITH MEALS
     Route: 058
     Dates: start: 20090607
  3. LANTUS [Concomitant]
     Indication: INSULIN-REQUIRING TYPE 2 DIABETES MELLITUS
     Dosage: 22 IU, QD AT BEDTIME
     Route: 058
     Dates: start: 20090401, end: 20090607
  4. LANTUS [Concomitant]
     Dosage: 50 IU, QD AT HS
     Route: 058
     Dates: start: 20090607
  5. PROGRAF [Concomitant]
     Indication: KIDNEY TRANSPLANT REJECTION
     Dates: start: 20090401
  6. CELLCEPT [Concomitant]
     Indication: KIDNEY TRANSPLANT REJECTION
  7. VALCYTE [Concomitant]
     Indication: KIDNEY TRANSPLANT REJECTION
  8. PENTAMIDINE ISETHIONATE [Concomitant]
     Indication: KIDNEY TRANSPLANT REJECTION
  9. METOPROLOL SUCCINATE [Concomitant]
     Indication: HYPERTENSION
     Route: 048
  10. ASPIRIN [Concomitant]
     Indication: PROPHYLAXIS
     Dosage: 81 MG, QD
     Route: 048

REACTIONS (2)
  - BLOOD GLUCOSE INCREASED [None]
  - LETHARGY [None]
